FAERS Safety Report 4292477-X (Version None)
Quarter: 2004Q1

REPORT INFORMATION
  Report Type: 
  Country: None (occurrence: None)
  Receive Date: 20040211
  Receipt Date: 20040204
  Transmission Date: 20041129
  Serious: Yes (Other)
  Sender: FDA-Public Use
  Company Number: PHBS2004US01759

PATIENT
  Age: 71 Year
  Sex: Female

DRUGS (5)
  1. PAMIDRONATE DISODIUM [Suspect]
     Indication: MULTIPLE MYELOMA
     Dosage: 50 MG/D X 7DAYS/OTHER WK
     Dates: start: 19990701
  2. PAMIDRONATE DISODIUM [Suspect]
     Dosage: 50 MG, QMO
  3. THALIDOMIDE [Concomitant]
     Dates: start: 19990801
  4. NIFEDIPINE [Concomitant]
  5. DYAZIDE [Concomitant]

REACTIONS (7)
  - FATIGUE [None]
  - JOINT SWELLING [None]
  - MALAISE [None]
  - NEPHROTIC SYNDROME [None]
  - OEDEMA PERIPHERAL [None]
  - PROTEIN URINE PRESENT [None]
  - RENAL INTERSTITIAL FIBROSIS [None]
